FAERS Safety Report 16237524 (Version 2)
Quarter: 2019Q2

REPORT INFORMATION
  Report Type: Spontaneous
  Country: US (occurrence: US)
  Receive Date: 20190425
  Receipt Date: 20190514
  Transmission Date: 20190711
  Serious: No
  Sender: FDA-Public Use
  Company Number: US-BIOGEN-2019BI00713026

PATIENT
  Age: 57 Year
  Sex: Female

DRUGS (3)
  1. PLEGRIDY [Suspect]
     Active Substance: PEGINTERFERON BETA-1A
     Route: 058
     Dates: start: 201903
  2. PLEGRIDY [Suspect]
     Active Substance: PEGINTERFERON BETA-1A
     Indication: MULTIPLE SCLEROSIS
     Route: 065
     Dates: start: 20190313
  3. PLEGRIDY [Suspect]
     Active Substance: PEGINTERFERON BETA-1A
     Route: 058
     Dates: start: 20190313

REACTIONS (6)
  - Dyspnoea [Unknown]
  - Influenza like illness [Unknown]
  - Headache [Unknown]
  - Pharyngeal swelling [Recovered/Resolved]
  - Throat tightness [Unknown]
  - Distractibility [Unknown]

NARRATIVE: CASE EVENT DATE: 20190324
